FAERS Safety Report 21698392 (Version 1)
Quarter: 2022Q4

REPORT INFORMATION
  Report Type: Spontaneous
  Country: JP (occurrence: JP)
  Receive Date: 20221208
  Receipt Date: 20221208
  Transmission Date: 20230112
  Serious: No
  Sender: FDA-Public Use
  Company Number: JP-ALKEM LABORATORIES LIMITED-JP-ALKEM-2022-10982

PATIENT

DRUGS (2)
  1. TOLVAPTAN [Suspect]
     Active Substance: TOLVAPTAN
     Indication: Cardiac failure congestive
     Dosage: 0.25 ? 0.18 MG/KG/DAY, MEAN STARTING DOSE
     Route: 065
  2. CARPERITIDE [Concomitant]
     Active Substance: CARPERITIDE
     Indication: Cardiac failure congestive
     Dosage: UNK
     Route: 065

REACTIONS (3)
  - Transaminases increased [Unknown]
  - Aspartate aminotransferase increased [Unknown]
  - Alanine aminotransferase increased [Unknown]
